FAERS Safety Report 21931903 (Version 2)
Quarter: 2023Q1

REPORT INFORMATION
  Report Type: Spontaneous
  Country: JP (occurrence: JP)
  Receive Date: 20230131
  Receipt Date: 20230217
  Transmission Date: 20230417
  Serious: Yes (Death)
  Sender: FDA-Public Use
  Company Number: JP-BAYER-2023A010958

PATIENT
  Age: 6 Decade
  Sex: Male

DRUGS (5)
  1. VITRAKVI [Suspect]
     Active Substance: LAROTRECTINIB
     Indication: Salivary gland cancer
     Dosage: UNK
     Dates: start: 20221220, end: 20230117
  2. ZETIA [Concomitant]
     Active Substance: EZETIMIBE
     Dates: start: 20221220, end: 20230117
  3. VONOPRAZAN FUMARATE [Concomitant]
     Active Substance: VONOPRAZAN FUMARATE
  4. MAGNESIUM OXIDE [Concomitant]
     Active Substance: MAGNESIUM OXIDE
  5. ROSUVASTATIN [Concomitant]
     Active Substance: ROSUVASTATIN

REACTIONS (1)
  - Neoplasm progression [Fatal]
